FAERS Safety Report 18969261 (Version 1)
Quarter: 2021Q1

REPORT INFORMATION
  Report Type: Spontaneous
  Country: US (occurrence: US)
  Receive Date: 20210304
  Receipt Date: 20210304
  Transmission Date: 20210420
  Serious: Yes (Hospitalization, Other)
  Sender: FDA-Public Use
  Company Number: US-BRACCO-2021US00683

PATIENT
  Age: 66 Year
  Sex: Female

DRUGS (3)
  1. ISOVUE [Suspect]
     Active Substance: IOPAMIDOL
     Indication: X-RAY
     Dosage: UNK, SINGLE
  2. TRIAMCINOLONE ACETONIDE. [Suspect]
     Active Substance: TRIAMCINOLONE ACETONIDE
     Dosage: 3 ML, SINGLE
  3. BUPIVACAINE. [Suspect]
     Active Substance: BUPIVACAINE
     Dosage: 2 ML, SINGLE

REACTIONS (2)
  - Off label use [Unknown]
  - Clostridium difficile colitis [Recovering/Resolving]
